FAERS Safety Report 9917508 (Version 5)
Quarter: 2014Q2

REPORT INFORMATION
  Report Type: Report from Study
  Country: US (occurrence: US)
  Receive Date: 20140221
  Receipt Date: 20140508
  Transmission Date: 20141212
  Serious: Yes (Other)
  Sender: FDA-Public Use
  Company Number: US-ABBVIE-14P-163-1204993-00

PATIENT
  Age: 25 Year
  Sex: Female

DRUGS (5)
  1. NORVIR [Suspect]
     Indication: ANTIRETROVIRAL THERAPY
     Route: 048
  2. TRUVADA [Suspect]
     Indication: ANTIRETROVIRAL THERAPY
     Route: 048
  3. PREZISTA [Suspect]
     Indication: ANTIRETROVIRAL THERAPY
     Route: 048
  4. MACROBID [Suspect]
     Indication: PRODUCT USED FOR UNKNOWN INDICATION
  5. KEFLEX [Suspect]
     Indication: PRODUCT USED FOR UNKNOWN INDICATION

REACTIONS (1)
  - Placenta accreta [Unknown]
